FAERS Safety Report 19499713 (Version 1)
Quarter: 2021Q3

REPORT INFORMATION
  Report Type: Spontaneous
  Country: CA (occurrence: CA)
  Receive Date: 20210706
  Receipt Date: 20210706
  Transmission Date: 20211014
  Serious: Yes (Hospitalization, Other)
  Sender: FDA-Public Use
  Company Number: CA-GLAXOSMITHKLINE-CACH2021GSK043123

PATIENT
  Age: 10 Year
  Sex: Male

DRUGS (3)
  1. IBUPROFEN. [Suspect]
     Active Substance: IBUPROFEN
     Indication: FEMUR FRACTURE
     Dosage: 6 MG, QID
  2. HYDROMORPHONE [Suspect]
     Active Substance: HYDROMORPHONE
     Indication: FEMUR FRACTURE
     Dosage: 1 MG Q4HR PRN
  3. HYDROCORTISONE. [Concomitant]
     Active Substance: HYDROCORTISONE
     Indication: DIABETES INSIPIDUS
     Dosage: 6 MG, BID
     Route: 048

REACTIONS (8)
  - Apnoea [Recovered/Resolved]
  - Blood sodium decreased [Recovered/Resolved]
  - Lethargy [Recovered/Resolved]
  - Hypernatraemia [Recovered/Resolved]
  - Unresponsive to stimuli [Recovered/Resolved]
  - Seizure [Recovered/Resolved]
  - Hypertonia [Recovered/Resolved]
  - Bruxism [Recovered/Resolved]
